FAERS Safety Report 9165752 (Version 1)
Quarter: 2013Q1

REPORT INFORMATION
  Report Type: Spontaneous
  Country: US (occurrence: US)
  Receive Date: 20130315
  Receipt Date: 20130315
  Transmission Date: 20140127
  Serious: Yes (Other)
  Sender: FDA-Public Use
  Company Number: US-ROCHE-1198041

PATIENT
  Sex: Female

DRUGS (11)
  1. XELODA [Suspect]
     Indication: PRODUCT USED FOR UNKNOWN INDICATION
     Route: 048
     Dates: start: 20120417, end: 20130307
  2. WARFARIN SODIUM [Concomitant]
     Route: 065
     Dates: start: 20121203
  3. WARFARIN SODIUM [Concomitant]
     Route: 065
     Dates: start: 20121115
  4. LEVOTHYROXINE [Concomitant]
     Route: 065
     Dates: start: 20121123
  5. LOVASTATIN [Concomitant]
     Route: 065
     Dates: start: 20121119
  6. DOC-Q-LACE [Concomitant]
     Route: 065
     Dates: start: 20120924
  7. CARTIA (DILTIAZEM HCL) [Concomitant]
     Route: 065
     Dates: start: 20120924
  8. CARTIA (DILTIAZEM HCL) [Concomitant]
     Route: 065
     Dates: start: 20120919
  9. ATENOLOL [Concomitant]
     Route: 065
  10. OMEPRAZOL [Concomitant]
     Route: 065
  11. PROTONIX [Concomitant]
     Route: 065

REACTIONS (3)
  - Swelling face [Unknown]
  - Thrombosis [Recovered/Resolved]
  - Local swelling [Unknown]
